FAERS Safety Report 8240470-4 (Version None)
Quarter: 2012Q1

REPORT INFORMATION
  Report Type: 
  Country: None (occurrence: None)
  Receive Date: 20120314
  Receipt Date: 20120106
  Transmission Date: 20120608
  Serious: Yes (Other)
  Sender: FDA-Public Use
  Company Number: HRA-CDB20120006

PATIENT
  Age: 33 Year
  Sex: Female
  Weight: 58.5 kg

DRUGS (1)
  1. ELLA [Suspect]
     Indication: CONTRACEPTION
     Dosage: 30 MG (30 MG, 1 IN 1 D), ORAL
     Route: 048
     Dates: start: 20111220, end: 20111220

REACTIONS (2)
  - UNINTENDED PREGNANCY [None]
  - DRUG INEFFECTIVE [None]
